FAERS Safety Report 11489742 (Version 1)
Quarter: 2015Q3

REPORT INFORMATION
  Report Type: Spontaneous
  Country: BE (occurrence: BE)
  Receive Date: 20150910
  Receipt Date: 20150910
  Transmission Date: 20151125
  Serious: Yes (Hospitalization)
  Sender: FDA-Public Use
  Company Number: BE-GLAXOSMITHKLINE-BE2015GSK019772

PATIENT
  Age: 28 Day
  Sex: Female

DRUGS (4)
  1. FOSCARNET [Concomitant]
     Active Substance: FOSCARNET
     Dosage: UNK
  2. ACICLOVIR [Suspect]
     Active Substance: ACYCLOVIR
     Indication: HERPES SIMPLEX
     Dosage: 60 MG/KG, UNK
     Route: 042
  3. ACICLOVIR [Suspect]
     Active Substance: ACYCLOVIR
     Dosage: CHICKENPOX DOSES
  4. FOSCARNET [Concomitant]
     Active Substance: FOSCARNET
     Indication: HERPES SIMPLEX
     Route: 065

REACTIONS (3)
  - Blister [Recovered/Resolved]
  - Drug resistance [Recovered/Resolved]
  - Skin lesion [Recovered/Resolved]
